FAERS Safety Report 22121358 (Version 1)
Quarter: 2023Q1

REPORT INFORMATION
  Report Type: Spontaneous
  Country: US (occurrence: US)
  Receive Date: 20230321
  Receipt Date: 20230321
  Transmission Date: 20230417
  Serious: No
  Sender: FDA-Public Use
  Company Number: US-PFIZER INC-PV202300051532

PATIENT
  Age: 80 Year
  Sex: Male

DRUGS (2)
  1. INLYTA [Suspect]
     Active Substance: AXITINIB
     Dosage: UNK, ALTERNATE DAY
  2. INLYTA [Suspect]
     Active Substance: AXITINIB
     Dosage: UNK(DURING THE WEEK WITH OFF WEEKEND)

REACTIONS (3)
  - Weight decreased [Unknown]
  - Off label use [Unknown]
  - Product use issue [Unknown]
